FAERS Safety Report 7735032-9 (Version None)
Quarter: 2011Q3

REPORT INFORMATION
  Report Type: 
  Country: None (occurrence: None)
  Receive Date: 20110907
  Receipt Date: 20110901
  Transmission Date: 20111222
  Serious: Yes (Death, Hospitalization, Other)
  Sender: FDA-Public Use
  Company Number: TW-ABBOTT-11P-153-0850326-00

PATIENT
  Sex: Female
  Weight: 60 kg

DRUGS (22)
  1. MELOXICAM [Concomitant]
     Indication: PRODUCT USED FOR UNKNOWN INDICATION
     Dates: start: 20110707
  2. SULFASALAZINE [Concomitant]
     Route: 048
     Dates: start: 20110809
  3. BROWN MIXTURE [Concomitant]
     Indication: PRODUCT USED FOR UNKNOWN INDICATION
     Dosage: 100 CC- QID
     Route: 048
     Dates: start: 20110809
  4. DEXTROMETHORPLAN SR [Concomitant]
     Indication: PRODUCT USED FOR UNKNOWN INDICATION
     Dates: start: 20110707
  5. HUMIRA [Suspect]
     Indication: RHEUMATOID ARTHRITIS
     Route: 058
     Dates: start: 20100125, end: 20110628
  6. MELOXICAM [Concomitant]
     Route: 048
     Dates: start: 20110809
  7. IWELL [Concomitant]
     Indication: PRODUCT USED FOR UNKNOWN INDICATION
     Dates: start: 20110707
  8. VALSARTAN [Concomitant]
     Indication: PRODUCT USED FOR UNKNOWN INDICATION
     Dates: start: 20110707
  9. DIMETHICONE [Concomitant]
     Indication: PRODUCT USED FOR UNKNOWN INDICATION
     Route: 048
     Dates: start: 20110809
  10. PREDNISOLONE [Concomitant]
     Route: 048
     Dates: start: 20110809
  11. FOLIC ACID [Concomitant]
     Indication: PRODUCT USED FOR UNKNOWN INDICATION
     Dates: start: 20110707
  12. METOCLOPRAMIDE HYDROCHLORIDE [Concomitant]
     Indication: PRODUCT USED FOR UNKNOWN INDICATION
     Route: 048
     Dates: start: 20110809
  13. ULTRACET [Concomitant]
     Dosage: ACT 325/TRAMADOL 37.5
     Route: 048
     Dates: start: 20110809
  14. METHOTREXATE [Concomitant]
     Indication: PRODUCT USED FOR UNKNOWN INDICATION
     Dates: start: 20110707
  15. LEVOFLOXACIN [Concomitant]
     Indication: PRODUCT USED FOR UNKNOWN INDICATION
     Dosage: STAT
     Route: 048
     Dates: start: 20110809
  16. ULTRACET [Concomitant]
     Indication: PRODUCT USED FOR UNKNOWN INDICATION
     Dosage: ACT 325/TRAMADOL 37.5- BID
     Dates: start: 20110707
  17. SULFASALAZINE [Concomitant]
     Indication: PRODUCT USED FOR UNKNOWN INDICATION
     Dates: start: 20110707
  18. LEFLUNOMIDE [Concomitant]
     Indication: PRODUCT USED FOR UNKNOWN INDICATION
     Dates: start: 20110707
  19. PREDNISOLONE [Concomitant]
     Indication: PRODUCT USED FOR UNKNOWN INDICATION
     Dates: start: 20110707
  20. FOLIC ACID [Concomitant]
     Route: 048
     Dates: start: 20110809
  21. IWELL [Concomitant]
     Route: 048
     Dates: start: 20110809
  22. LEVOFLOXACIN [Concomitant]
     Dosage: QD-AM/AC
     Route: 048
     Dates: start: 20110809

REACTIONS (7)
  - LUNG INFECTION [None]
  - URINARY TRACT INFECTION [None]
  - PYREXIA [None]
  - ACINETOBACTER BACTERAEMIA [None]
  - PNEUMONIA [None]
  - NOSOCOMIAL INFECTION [None]
  - DYSPNOEA [None]
